FAERS Safety Report 25777070 (Version 1)
Quarter: 2025Q3

REPORT INFORMATION
  Report Type: Spontaneous
  Country: US (occurrence: US)
  Receive Date: 20250909
  Receipt Date: 20250909
  Transmission Date: 20251020
  Serious: No
  Sender: DOMPE FARMACEUTICI
  Company Number: US-FARMAPROD-202410-3492

PATIENT
  Sex: Female

DRUGS (10)
  1. OXERVATE [Suspect]
     Active Substance: CENEGERMIN-BKBJ
     Indication: Neurotrophic keratopathy
     Route: 047
     Dates: start: 20240830
  2. UNSPECIFIED INGREDIENT [Concomitant]
     Active Substance: UNSPECIFIED INGREDIENT
  3. NITRIC ACID [Concomitant]
     Active Substance: NITRIC ACID
  4. BRIMONIDINE TARTRATE [Concomitant]
     Active Substance: BRIMONIDINE TARTRATE
  5. COSOPT [Concomitant]
     Active Substance: DORZOLAMIDE HYDROCHLORIDE\TIMOLOL MALEATE
  6. OMEGA 3 [Concomitant]
     Active Substance: CAPSAICIN
  7. VITAMIN B12 [Concomitant]
     Active Substance: CYANOCOBALAMIN
  8. MURO 128 [Concomitant]
     Active Substance: SODIUM CHLORIDE
  9. MOXIFLOXACIN [Concomitant]
     Active Substance: MOXIFLOXACIN
  10. VITAMINS [Concomitant]
     Active Substance: VITAMINS

REACTIONS (1)
  - Eye pain [Unknown]
